FAERS Safety Report 9301896 (Version 1)
Quarter: 2013Q2

REPORT INFORMATION
  Report Type: Spontaneous
  Country: DK (occurrence: DK)
  Receive Date: 20130521
  Receipt Date: 20130521
  Transmission Date: 20140414
  Serious: Yes (Other)
  Sender: FDA-Public Use
  Company Number: DK-ACTAVIS-2013-08439

PATIENT
  Age: 50 Year
  Sex: Male

DRUGS (7)
  1. SALBUTAMOL (UNKNOWN) [Suspect]
     Indication: ASTHMA
     Dosage: UNK, AS REQUIRED AND ABOUT EVERY 20 MINUTES OVER ABOUT 11 HOURS
     Route: 055
  2. ATENOLOL [Concomitant]
     Indication: PRODUCT USED FOR UNKNOWN INDICATION
     Dosage: UNK
     Route: 065
  3. HYDROCHLOROTHIAZIDE W/RAMIPRIL [Concomitant]
     Indication: PRODUCT USED FOR UNKNOWN INDICATION
     Dosage: UNK
     Route: 065
  4. BUDESONIDE W/FORMOTEROL FUMARATE [Concomitant]
     Indication: PRODUCT USED FOR UNKNOWN INDICATION
     Dosage: UNK
     Route: 055
  5. TERBUTALINE [Concomitant]
     Indication: PRODUCT USED FOR UNKNOWN INDICATION
     Dosage: UNK
     Route: 055
  6. METHYLPREDNISOLONE [Concomitant]
     Indication: ASTHMA
     Dosage: 80 MG, UNK
     Route: 042
  7. OXYGEN [Concomitant]
     Indication: ASTHMA
     Dosage: UNK
     Route: 045

REACTIONS (2)
  - Lactic acidosis [Recovered/Resolved]
  - Hypokalaemia [Unknown]
